FAERS Safety Report 14233848 (Version 2)
Quarter: 2017Q4

REPORT INFORMATION
  Report Type: Report from Study
  Country: None (occurrence: CA)
  Receive Date: 20171128
  Receipt Date: 20171218
  Transmission Date: 20180321
  Serious: Yes (Disabling)
  Sender: FDA-Public Use
  Company Number: CA-ABBVIE-17K-028-2175857-00

PATIENT
  Sex: Male

DRUGS (1)
  1. HUMIRA [Suspect]
     Active Substance: ADALIMUMAB
     Indication: HIDRADENITIS
     Route: 058
     Dates: start: 20170215

REACTIONS (7)
  - Hypoaesthesia [Unknown]
  - Drug dispensing error [Unknown]
  - Asthenia [Recovering/Resolving]
  - Fatigue [Not Recovered/Not Resolved]
  - Viral infection [Unknown]
  - Muscular weakness [Unknown]
  - Hidradenitis [Unknown]

NARRATIVE: CASE EVENT DATE: 2017
